FAERS Safety Report 13961678 (Version 1)
Quarter: 2017Q3

REPORT INFORMATION
  Report Type: Report from Study
  Country: AU (occurrence: AU)
  Receive Date: 20170912
  Receipt Date: 20170912
  Transmission Date: 20171128
  Serious: Yes (Other)
  Sender: FDA-Public Use
  Company Number: AU-REGENERON PHARMACEUTICALS, INC.-2017-21718

PATIENT

DRUGS (1)
  1. EYLEA [Suspect]
     Active Substance: AFLIBERCEPT
     Indication: NEOVASCULAR AGE-RELATED MACULAR DEGENERATION
     Dosage: UNK (RIGHT EYE). TOTAL DOSES AND LAST DOSE PRIOR THE EVENT WERE NOT PROVIDED.
     Route: 031
     Dates: start: 20151201

REACTIONS (3)
  - Eye pain [Recovered/Resolved]
  - Injection site discomfort [Recovered/Resolved]
  - Eye haemorrhage [Unknown]
